FAERS Safety Report 10310031 (Version 3)
Quarter: 2014Q4

REPORT INFORMATION
  Report Type: Report from Study
  Country: IL (occurrence: IL)
  Receive Date: 20140717
  Receipt Date: 20141203
  Transmission Date: 20150528
  Serious: Yes (Hospitalization, Other)
  Sender: FDA-Public Use
  Company Number: PHHY2014IL076045

PATIENT
  Age: 31 Year
  Sex: Female

DRUGS (1)
  1. GILENYA [Suspect]
     Active Substance: FINGOLIMOD HYDROCHLORIDE
     Indication: MULTIPLE SCLEROSIS
     Dosage: 0.5 MG, QD
     Route: 048
     Dates: start: 20140618

REACTIONS (9)
  - Gait disturbance [Recovering/Resolving]
  - Visual impairment [Unknown]
  - Dysarthria [Recovering/Resolving]
  - Dyspnoea [Recovered/Resolved]
  - Tongue paralysis [Unknown]
  - Hypoaesthesia oral [Recovering/Resolving]
  - Palpitations [Recovered/Resolved]
  - Hypoaesthesia [Recovering/Resolving]
  - Central nervous system lesion [Unknown]

NARRATIVE: CASE EVENT DATE: 20140618
